FAERS Safety Report 21477930 (Version 1)
Quarter: 2022Q4

REPORT INFORMATION
  Report Type: Spontaneous
  Country: US (occurrence: None)
  Receive Date: 20221018
  Receipt Date: 20221018
  Transmission Date: 20230113
  Serious: Yes (Life-Threatening, Disabling)
  Sender: FDA-Public Use
  Company Number: None

PATIENT
  Age: 33 Year
  Sex: Female
  Weight: 56.25 kg

DRUGS (9)
  1. BUPRENORPHINE\NALOXONE [Suspect]
     Active Substance: BUPRENORPHINE\NALOXONE
     Indication: Drug dependence
     Dosage: OTHER QUANTITY : 1.5 FILM STRIP;?FREQUENCY : DAILY;?
     Route: 060
     Dates: start: 20211202, end: 20220421
  2. BUSPIRONE [Concomitant]
     Active Substance: BUSPIRONE HYDROCHLORIDE
  3. ADDERALL [Concomitant]
     Active Substance: AMPHETAMINE ASPARTATE\AMPHETAMINE SULFATE\DEXTROAMPHETAMINE SACCHARATE\DEXTROAMPHETAMINE SULFATE
  4. virazadone [Concomitant]
  5. VALACYCLOVIR [Concomitant]
     Active Substance: VALACYCLOVIR HYDROCHLORIDE
  6. MIRENA [Concomitant]
     Active Substance: LEVONORGESTREL
  7. SUMATRIPTAN [Concomitant]
     Active Substance: SUMATRIPTAN
  8. estrogen cream [Concomitant]
  9. women^s multivitamin [Concomitant]

REACTIONS (12)
  - Manufacturing issue [None]
  - Product quality issue [None]
  - Drug level decreased [None]
  - Drug withdrawal syndrome [None]
  - Drug dependence [None]
  - Migraine [None]
  - Glossodynia [None]
  - Pain [None]
  - Anxiety [None]
  - Fatigue [None]
  - Mental disorder [None]
  - Product substitution issue [None]

NARRATIVE: CASE EVENT DATE: 20211202
